FAERS Safety Report 8314744-2 (Version None)
Quarter: 2012Q2

REPORT INFORMATION
  Report Type: 
  Country: None (occurrence: None)
  Receive Date: 20120426
  Receipt Date: 20120418
  Transmission Date: 20120825
  Serious: Yes (Hospitalization)
  Sender: FDA-Public Use
  Company Number: DE-BAYER-2011-116100

PATIENT
  Age: 42 Year
  Sex: Female
  Weight: 65 kg

DRUGS (2)
  1. ESTRADIOL VALERATE/DIENOGEST [Suspect]
     Dosage: UNK
     Dates: start: 20110701, end: 20110801
  2. ANTI-ALLERGIC MEDICATION [Concomitant]

REACTIONS (12)
  - PRURITUS [None]
  - OEDEMA PERIPHERAL [None]
  - HEADACHE [None]
  - SWELLING FACE [None]
  - SKIN DISORDER [None]
  - DRY SKIN [None]
  - WEIGHT INCREASED [None]
  - RASH [None]
  - PERIORBITAL OEDEMA [None]
  - GENERALISED OEDEMA [None]
  - HYPERSENSITIVITY [None]
  - HYPERTENSION [None]
